FAERS Safety Report 12590608 (Version 1)
Quarter: 2016Q3

REPORT INFORMATION
  Report Type: Report from Study
  Country: US (occurrence: US)
  Receive Date: 20160726
  Receipt Date: 20160726
  Transmission Date: 20161109
  Serious: Yes (Other)
  Sender: FDA-Public Use
  Company Number: US-AMGEN-USASL2016074886

PATIENT
  Age: 68 Year
  Sex: Male
  Weight: 97.52 kg

DRUGS (7)
  1. PROMACTA [Concomitant]
     Active Substance: ELTROMBOPAG OLAMINE
     Dosage: 50 MG, QD
  2. NPLATE [Suspect]
     Active Substance: ROMIPLOSTIM
     Indication: IMMUNE THROMBOCYTOPENIC PURPURA
     Dosage: UNK
     Route: 065
     Dates: end: 201605
  3. LOTREL [Concomitant]
     Active Substance: AMLODIPINE BESYLATE\BENAZEPRIL HYDROCHLORIDE
     Dosage: 5 MG, QD
  4. PROTONIX [Concomitant]
     Active Substance: PANTOPRAZOLE SODIUM
     Dosage: 40 MG, QD
  5. ANUSOL HC [Concomitant]
     Active Substance: HYDROCORTISONE
     Dosage: 0 G, BID
  6. MOBIC [Concomitant]
     Active Substance: MELOXICAM
     Dosage: 15 MG, QD
  7. TRICOR [Concomitant]
     Active Substance: FENOFIBRATE
     Dosage: 160 MG, QD

REACTIONS (9)
  - Drug effect decreased [Unknown]
  - Chronic kidney disease [Unknown]
  - Weight decreased [Unknown]
  - Insomnia [Unknown]
  - Platelet count abnormal [Unknown]
  - Hypoaesthesia [Not Recovered/Not Resolved]
  - Contusion [Unknown]
  - Ecchymosis [Unknown]
  - Fatigue [Unknown]
